FAERS Safety Report 17753080 (Version 3)
Quarter: 2020Q2

REPORT INFORMATION
  Report Type: Spontaneous
  Country: FR (occurrence: FR)
  Receive Date: 20200506
  Receipt Date: 20200519
  Transmission Date: 20200714
  Serious: Yes (Hospitalization, Other)
  Sender: FDA-Public Use
  Company Number: NVSC2020FR120647

PATIENT
  Age: 82 Year
  Sex: Female
  Weight: 61 kg

DRUGS (10)
  1. CIMETIDINE [Suspect]
     Active Substance: CIMETIDINE
     Dosage: 200 MG, QD
     Route: 048
     Dates: start: 20191213, end: 20200110
  2. CETIRIZINE DIHYDROCHLORIDE [Suspect]
     Active Substance: CETIRIZINE HYDROCHLORIDE
     Dosage: 10 MG, QD
     Route: 048
     Dates: start: 20191213, end: 20200110
  3. PREDNISOLONE. [Concomitant]
     Active Substance: PREDNISOLONE
     Indication: PRODUCT USED FOR UNKNOWN INDICATION
     Dosage: 40 MG, CYCLIC
     Route: 048
     Dates: start: 20200102
  4. CIMETIDINE [Suspect]
     Active Substance: CIMETIDINE
     Indication: PRODUCT USED FOR UNKNOWN INDICATION
     Dosage: 200 MG, QD
     Route: 048
     Dates: start: 20200102
  5. CETIRIZINE DIHYDROCHLORIDE [Suspect]
     Active Substance: CETIRIZINE HYDROCHLORIDE
     Indication: PRODUCT USED FOR UNKNOWN INDICATION
     Dosage: 10 MG, QD
     Route: 048
     Dates: start: 20200102, end: 20200102
  6. CARBOPLATINE [Suspect]
     Active Substance: CARBOPLATIN
     Dosage: 170 MG, CYCLIC
     Route: 041
     Dates: start: 20191213, end: 20200110
  7. CARBOPLATINE [Suspect]
     Active Substance: CARBOPLATIN
     Indication: OVARIAN CANCER STAGE IV
     Dosage: 170 MG
     Route: 041
     Dates: start: 20200102
  8. PACLITAXEL. [Suspect]
     Active Substance: PACLITAXEL
     Dosage: 90 MG, CYCLIC
     Route: 041
     Dates: start: 20191213
  9. PREDNISOLONE. [Concomitant]
     Active Substance: PREDNISOLONE
     Dosage: 40 MG, CYCLIC
     Route: 048
     Dates: start: 20191213, end: 20200110
  10. PACLITAXEL. [Suspect]
     Active Substance: PACLITAXEL
     Indication: OVARIAN CANCER STAGE IV
     Dosage: 90 MG
     Route: 041
     Dates: start: 20200102

REACTIONS (4)
  - Dyspnoea [Recovered/Resolved]
  - Anaphylactoid reaction [Recovered/Resolved]
  - Erythema [Recovered/Resolved]
  - Abdominal pain [Recovered/Resolved]

NARRATIVE: CASE EVENT DATE: 20200102
